FAERS Safety Report 18793443 (Version 1)
Quarter: 2021Q1

REPORT INFORMATION
  Report Type: Spontaneous
  Country: US (occurrence: US)
  Receive Date: 20210126
  Receipt Date: 20210126
  Transmission Date: 20210419
  Serious: Yes (Hospitalization)
  Sender: FDA-Public Use
  Company Number: None

PATIENT
  Age: 88 Year
  Sex: Male

DRUGS (21)
  1. JANUVIA [Concomitant]
     Active Substance: SITAGLIPTIN PHOSPHATE
  2. METOPROL SUC ER [Concomitant]
     Active Substance: METOPROLOL SUCCINATE
  3. PANTOPRAZOLE [Concomitant]
     Active Substance: PANTOPRAZOLE
  4. PREDNISONE. [Concomitant]
     Active Substance: PREDNISONE
  5. SILDENAFIL. [Concomitant]
     Active Substance: SILDENAFIL
  6. SPIRONOLACT [Concomitant]
     Active Substance: SPIRONOLACTONE
  7. METOPROL TAR [Concomitant]
  8. FUROSEMIDE. [Concomitant]
     Active Substance: FUROSEMIDE
  9. ISOSORB DIN [Concomitant]
     Active Substance: ISOSORBIDE DINITRATE
  10. NYSTOP [Concomitant]
     Active Substance: NYSTATIN
  11. POT CL MICRO 20 MEQ [Concomitant]
     Active Substance: POTASSIUM CHLORIDE
  12. DOFETILIDE. [Concomitant]
     Active Substance: DOFETILIDE
  13. GABAPENTIN. [Concomitant]
     Active Substance: GABAPENTIN
  14. XARELTO [Concomitant]
     Active Substance: RIVAROXABAN
  15. OMEPRAZOLE. [Concomitant]
     Active Substance: OMEPRAZOLE
  16. FAMOTIDINE. [Concomitant]
     Active Substance: FAMOTIDINE
  17. HUMALOG [Concomitant]
     Active Substance: INSULIN LISPRO
  18. ESBRIET [Suspect]
     Active Substance: PIRFENIDONE
     Indication: IDIOPATHIC PULMONARY FIBROSIS
     Dosage: ?          OTHER DOSE:3 TABS;?
     Route: 048
     Dates: start: 20181130
  19. LEVOCETIRIZI [Concomitant]
  20. NYSTATIN. [Concomitant]
     Active Substance: NYSTATIN
  21. VITAMIN D [Concomitant]
     Active Substance: VITAMIN D NOS

REACTIONS (3)
  - Hypotension [None]
  - Vomiting [None]
  - Diarrhoea [None]

NARRATIVE: CASE EVENT DATE: 20201226
